FAERS Safety Report 5289694-9 (Version None)
Quarter: 2007Q2

REPORT INFORMATION
  Report Type: 
  Country: None (occurrence: None)
  Receive Date: 20070406
  Receipt Date: 20070323
  Transmission Date: 20071010
  Serious: No
  Sender: FDA-Public Use
  Company Number: JP-ELI_LILLY_AND_COMPANY-JP200704000711

PATIENT
  Age: 19 Year
  Sex: Male

DRUGS (2)
  1. ZYPREXA [Suspect]
     Indication: SCHIZOPHRENIA
     Dosage: 7.5 MG, DAILY (1/D)
     Route: 048
  2. PURSENNID [Concomitant]
     Indication: CONSTIPATION
     Route: 048

REACTIONS (1)
  - HAEMORRHAGE SUBCUTANEOUS [None]
